FAERS Safety Report 6143866-X (Version None)
Quarter: 2009Q2

REPORT INFORMATION
  Report Type: 
  Country: None (occurrence: None)
  Receive Date: 20090405
  Receipt Date: 20090323
  Transmission Date: 20091009
  Serious: Yes (Other)
  Sender: FDA-Public Use
  Company Number: FR-PFIZER INC-2009188198

PATIENT

DRUGS (1)
  1. CABERGOLINE [Suspect]
     Dosage: 3 MG, WEEKLY

REACTIONS (1)
  - VISUAL FIELD DEFECT [None]
